FAERS Safety Report 23990918 (Version 1)
Quarter: 2024Q2

REPORT INFORMATION
  Report Type: Spontaneous
  Country: JP (occurrence: None)
  Receive Date: 20240619
  Receipt Date: 20240619
  Transmission Date: 20240716
  Serious: Yes (Other)
  Sender: FDA-Public Use
  Company Number: 2024A137928

PATIENT
  Age: 90 Year
  Sex: Female

DRUGS (1)
  1. IRESSA [Suspect]
     Active Substance: GEFITINIB
     Indication: Lung adenocarcinoma
     Dosage: DOSE UNKNOWN
     Route: 048

REACTIONS (2)
  - Hepatocellular carcinoma [Unknown]
  - Drug-induced liver injury [Unknown]
